FAERS Safety Report 8534381-4 (Version None)
Quarter: 2012Q3

REPORT INFORMATION
  Report Type: 
  Country: None (occurrence: None)
  Receive Date: 20120724
  Receipt Date: 20120709
  Transmission Date: 20120928
  Serious: Yes (Other)
  Sender: FDA-Public Use
  Company Number: GB-WATSON-2012-12421

PATIENT
  Age: 34 Year
  Sex: Female

DRUGS (9)
  1. PREDNISOLONE [Suspect]
     Indication: TRANSPLANT REJECTION
     Dosage: 20 MG, BID
     Route: 048
  2. FOSCARNET [Suspect]
     Indication: CYTOMEGALOVIRUS VIRAEMIA
     Dosage: UNK
     Route: 065
  3. LEFLUNOMIDE [Suspect]
     Indication: CYTOMEGALOVIRUS VIRAEMIA
     Dosage: 20 MG, DAILY MAINTENANCE
     Route: 066
  4. GANCICLOVIR [Suspect]
     Indication: CYTOMEGALOVIRUS VIRAEMIA
     Dosage: UNK
     Route: 042
  5. METHYLPREDNISOLONE [Suspect]
     Indication: TRANSPLANT REJECTION
     Dosage: 500 MG, UNK
     Route: 042
  6. LEFLUNOMIDE [Suspect]
     Dosage: 100 MG, UNK
     Route: 065
  7. TACROLIMUS [Suspect]
     Indication: IMMUNOSUPPRESSION
     Dosage: UNK
     Route: 065
  8. VALGANCICLOVIR [Suspect]
     Indication: ANTIVIRAL PROPHYLAXIS
     Dosage: 900 MG, DAILY
     Route: 048
  9. CIDOFOVIR [Suspect]
     Indication: CYTOMEGALOVIRUS VIRAEMIA
     Dosage: UNK
     Route: 065

REACTIONS (2)
  - CYTOMEGALOVIRUS VIRAEMIA [None]
  - DRUG RESISTANCE [None]
